FAERS Safety Report 9671886 (Version 2)
Quarter: 2014Q1

REPORT INFORMATION
  Report Type: Spontaneous
  Country: IT (occurrence: IT)
  Receive Date: 20131106
  Receipt Date: 20140107
  Transmission Date: 20141002
  Serious: Yes (Hospitalization)
  Sender: FDA-Public Use
  Company Number: IT-BRISTOL-MYERS SQUIBB COMPANY-19703834

PATIENT
  Age: 81 Year
  Sex: Male

DRUGS (1)
  1. COUMADIN TABS 5 MG [Suspect]
     Indication: ATRIAL FIBRILLATION
     Route: 048
     Dates: start: 20111001, end: 20131001

REACTIONS (2)
  - Sepsis [Unknown]
  - International normalised ratio increased [Unknown]
